FAERS Safety Report 4977831-2 (Version None)
Quarter: 2006Q2

REPORT INFORMATION
  Report Type: 
  Country: None (occurrence: None)
  Receive Date: 20060417
  Receipt Date: 20060403
  Transmission Date: 20061013
  Serious: Yes (Disabling)
  Sender: FDA-Public Use
  Company Number: 2006046533

PATIENT
  Sex: Female

DRUGS (6)
  1. XANAX [Suspect]
     Indication: ILL-DEFINED DISORDER
  2. NEURONTIN [Suspect]
     Indication: ILL-DEFINED DISORDER
  3. CRESTOR [Concomitant]
  4. INSULIN (INSULIN) [Concomitant]
  5. AMBIEN [Concomitant]
  6. PROTONIX [Concomitant]

REACTIONS (2)
  - COMPLEX REGIONAL PAIN SYNDROME [None]
  - DIABETIC NEUROPATHY [None]
